FAERS Safety Report 5854036-4 (Version None)
Quarter: 2008Q3

REPORT INFORMATION
  Report Type: 
  Country: None (occurrence: None)
  Receive Date: 20080822
  Receipt Date: 20080815
  Transmission Date: 20090109
  Serious: Yes (Hospitalization)
  Sender: FDA-Public Use
  Company Number: US-MERCK-0808USA02749

PATIENT
  Age: 77 Year
  Sex: Female
  Weight: 71 kg

DRUGS (1)
  1. FOSAMAX [Suspect]
     Route: 048

REACTIONS (18)
  - BACK PAIN [None]
  - BLOOD PRESSURE INCREASED [None]
  - BLOOD SODIUM DECREASED [None]
  - BRONCHITIS [None]
  - COUGH [None]
  - DRUG INTOLERANCE [None]
  - DYSPNOEA [None]
  - GROIN PAIN [None]
  - HAEMORRHOIDAL HAEMORRHAGE [None]
  - HEADACHE [None]
  - JOINT SWELLING [None]
  - MUSCULOSKELETAL PAIN [None]
  - OSTEOARTHRITIS [None]
  - PAIN [None]
  - SINUS CONGESTION [None]
  - SMALL INTESTINAL OBSTRUCTION [None]
  - VIRAL UPPER RESPIRATORY TRACT INFECTION [None]
  - VISION BLURRED [None]
